FAERS Safety Report 12500004 (Version 1)
Quarter: 2016Q2

REPORT INFORMATION
  Report Type: Spontaneous
  Country: US (occurrence: None)
  Receive Date: 20160624
  Receipt Date: 20160624
  Transmission Date: 20160815
  Serious: Yes (Hospitalization)
  Sender: FDA-Public Use
  Company Number: None

PATIENT
  Age: 69 Year
  Sex: Male
  Weight: 91.9 kg

DRUGS (16)
  1. AEROSOL [Concomitant]
  2. CELLCEPT [Concomitant]
     Active Substance: MYCOPHENOLATE MOFETIL\MYCOPHENOLATE MOFETIL HYDROCHLORIDE
  3. CYCLOSPORINE. [Concomitant]
     Active Substance: CYCLOSPORINE
  4. FLAGYL [Concomitant]
     Active Substance: METRONIDAZOLE\METRONIDAZOLE HYDROCHLORIDE
  5. INSULIN PEN [Concomitant]
     Active Substance: INSULIN NOS
  6. PASIREOTIDE, 40MG NOVARTIS [Suspect]
     Active Substance: PASIREOTIDE
     Indication: POLYCYSTIC LIVER DISEASE
     Dosage: EVERY 28 DAYS
     Route: 030
     Dates: start: 20160210, end: 20160309
  7. ATORVASTATIN [Concomitant]
     Active Substance: ATORVASTATIN
  8. CARVEDILOL. [Concomitant]
     Active Substance: CARVEDILOL
  9. ASPIRIN-81 [Concomitant]
  10. OMEPRAZOLE. [Concomitant]
     Active Substance: OMEPRAZOLE
  11. MAGNESIUM [Concomitant]
     Active Substance: MAGNESIUM
  12. LANTUS [Concomitant]
     Active Substance: INSULIN GLARGINE
  13. POTASSIUM [Concomitant]
     Active Substance: POTASSIUM
  14. AMLODIPINE [Concomitant]
     Active Substance: AMLODIPINE BESYLATE
  15. NOVOLOG [Concomitant]
     Active Substance: INSULIN ASPART
  16. FLUNISOLIDE. [Concomitant]
     Active Substance: FLUNISOLIDE

REACTIONS (3)
  - Coronary artery occlusion [None]
  - Asthenia [None]
  - Catheterisation cardiac [None]

NARRATIVE: CASE EVENT DATE: 20160413
